FAERS Safety Report 12975429 (Version 1)
Quarter: 2016Q4

REPORT INFORMATION
  Report Type: Spontaneous
  Country: US (occurrence: US)
  Receive Date: 20161125
  Receipt Date: 20161125
  Transmission Date: 20170207
  Serious: No
  Sender: FDA-Public Use
  Company Number: US-ELI_LILLY_AND_COMPANY-US201611001950

PATIENT
  Age: 18 Year
  Sex: Male

DRUGS (1)
  1. HUMATROPE [Suspect]
     Active Substance: SOMATROPIN
     Indication: HYPOPITUITARISM
     Dosage: 3.4 MG, QD
     Route: 065
     Dates: start: 201601

REACTIONS (2)
  - Vomiting [Unknown]
  - Dyspepsia [Unknown]

NARRATIVE: CASE EVENT DATE: 20161104
